FAERS Safety Report 21631634 (Version 1)
Quarter: 2022Q4

REPORT INFORMATION
  Report Type: Spontaneous
  Country: US (occurrence: US)
  Receive Date: 20221123
  Receipt Date: 20221123
  Transmission Date: 20230113
  Serious: Yes (Other)
  Sender: FDA-Public Use
  Company Number: US-SUN PHARMACEUTICAL INDUSTRIES LTD-2022R1-364830

PATIENT
  Age: 15 Year
  Sex: Female

DRUGS (1)
  1. FERROUS SULFATE [Suspect]
     Active Substance: FERROUS SULFATE
     Indication: Iron deficiency anaemia
     Dosage: 325 MILLIGRAM, BID
     Route: 048

REACTIONS (3)
  - Abdominal pain [Unknown]
  - Gastric ulcer [Unknown]
  - Weight decreased [Unknown]
